FAERS Safety Report 9382297 (Version 1)
Quarter: 2013Q3

REPORT INFORMATION
  Report Type: Spontaneous
  Country: AU (occurrence: AU)
  Receive Date: 20130703
  Receipt Date: 20130703
  Transmission Date: 20140515
  Serious: Yes (Death, Hospitalization, Other)
  Sender: FDA-Public Use
  Company Number: AU-B.I. PHARMACEUTICALS,INC./RIDGEFIELD-2013-AU-00783AU

PATIENT
  Age: 74 Year
  Sex: Female

DRUGS (3)
  1. PRADAXA [Suspect]
     Indication: CEREBROVASCULAR ACCIDENT PROPHYLAXIS
     Dosage: 220 MG
  2. PRADAXA [Suspect]
     Indication: ATRIAL FIBRILLATION
  3. DIGOXIN [Concomitant]

REACTIONS (14)
  - Pneumonia aspiration [Fatal]
  - Renal failure acute [Unknown]
  - Chronic myelomonocytic leukaemia [Unknown]
  - General physical health deterioration [Unknown]
  - Parkinson^s disease [Unknown]
  - Tumour lysis syndrome [Unknown]
  - Toxicity to various agents [Unknown]
  - Anticoagulation drug level above therapeutic [Unknown]
  - Decreased appetite [Unknown]
  - Dysphagia [Unknown]
  - Condition aggravated [Unknown]
  - Oedema [Unknown]
  - Hypotension [Unknown]
  - General physical health deterioration [Unknown]
